FAERS Safety Report 15245568 (Version 1)
Quarter: 2018Q3

REPORT INFORMATION
  Report Type: Spontaneous
  Country: US (occurrence: US)
  Receive Date: 20180713
  Receipt Date: 20180713
  Transmission Date: 20181010
  Serious: No
  Sender: FDA-Public Use
  Company Number: None

PATIENT
  Age: 76 Year
  Sex: Female
  Weight: 53.07 kg

DRUGS (11)
  1. METOPROLOL TARTRATE. [Concomitant]
     Active Substance: METOPROLOL TARTRATE
  2. DIPHENYLDRAMINE HCL (WAL SLEEP) [Concomitant]
  3. STIOLTO RESPIMAT [Suspect]
     Active Substance: OLODATEROL HYDROCHLORIDE\TIOTROPIUM BROMIDE MONOHYDRATE
     Indication: CHRONIC OBSTRUCTIVE PULMONARY DISEASE
     Dosage: ?          QUANTITY:2 PUFFS/DAY;?
     Route: 048
     Dates: start: 20180501, end: 20180510
  4. PREDNISONE. [Concomitant]
     Active Substance: PREDNISONE
  5. PREVALITE [Concomitant]
     Active Substance: CHOLESTYRAMINE
  6. SUPER B COMPLEX [Concomitant]
     Active Substance: CYANOCOBALAMIN\DEXPANTHENOL\NIACINAMIDE\PYRIDOXINE HYDROCHLORIDE\RIBOFLAVIN 5^-PHOSPHATE SODIUM\THIAMINE HYDROCHLORIDE\VITAMIN B COMPLEX
  7. COMBIVENT [Concomitant]
     Active Substance: ALBUTEROL SULFATE\IPRATROPIUM BROMIDE
  8. BENZONATE [Concomitant]
     Active Substance: BENZONATATE
  9. STIOLTO RESPIMAT [Suspect]
     Active Substance: OLODATEROL HYDROCHLORIDE\TIOTROPIUM BROMIDE MONOHYDRATE
     Indication: ASTHMA
     Dosage: ?          QUANTITY:2 PUFFS/DAY;?
     Route: 048
     Dates: start: 20180501, end: 20180510
  10. VITAMIN C [Concomitant]
     Active Substance: ASCORBIC ACID
  11. VENTOLIN [Concomitant]
     Active Substance: ALBUTEROL SULFATE

REACTIONS (8)
  - Musculoskeletal pain [None]
  - Irritability [None]
  - Tachycardia [None]
  - Visual impairment [None]
  - Malaise [None]
  - Tremor [None]
  - Motor dysfunction [None]
  - Dizziness [None]

NARRATIVE: CASE EVENT DATE: 20180510
